FAERS Safety Report 23398815 (Version 2)
Quarter: 2024Q2

REPORT INFORMATION
  Report Type: Spontaneous
  Country: JP (occurrence: JP)
  Receive Date: 20240112
  Receipt Date: 20240404
  Transmission Date: 20240716
  Serious: Yes (Hospitalization)
  Sender: FDA-Public Use
  Company Number: JP-Eisai-202312433_LEN_P_1

PATIENT
  Age: 81 Year
  Sex: Female
  Weight: 51 kg

DRUGS (6)
  1. LENVIMA [Suspect]
     Active Substance: LENVATINIB
     Indication: Thyroid cancer recurrent
     Dosage: DOSE UNKNOWN
     Route: 048
  2. LENVIMA [Suspect]
     Active Substance: LENVATINIB
     Dosage: DOSE UNKNOWN
     Route: 048
     Dates: start: 20230111, end: 20230130
  3. LEVOTHYROXINE [Concomitant]
     Active Substance: LEVOTHYROXINE\LEVOTHYROXINE SODIUM
     Indication: Thyroid hormone replacement therapy
  4. ALFAROL [Concomitant]
     Active Substance: ALFACALCIDOL
     Indication: Vitamin supplementation
  5. AMLODIPINE [Concomitant]
     Active Substance: AMLODIPINE BESYLATE
     Indication: Hypertension
  6. SITAGLIPTIN [Concomitant]
     Active Substance: SITAGLIPTIN
     Indication: Diabetes mellitus

REACTIONS (2)
  - Cholelithiasis [Recovering/Resolving]
  - Protein urine present [Recovering/Resolving]

NARRATIVE: CASE EVENT DATE: 20230130
